FAERS Safety Report 12069084 (Version 2)
Quarter: 2016Q1

REPORT INFORMATION
  Report Type: Report from Study
  Country: CA (occurrence: CA)
  Receive Date: 20160211
  Receipt Date: 20160217
  Transmission Date: 20160526
  Serious: Yes (Hospitalization, Other)
  Sender: FDA-Public Use
  Company Number: CA-ROCHE-1233108

PATIENT
  Age: 72 Year
  Sex: Female
  Weight: 70 kg

DRUGS (16)
  1. ACTEMRA [Suspect]
     Active Substance: TOCILIZUMAB
     Route: 042
     Dates: start: 20120419
  2. ARAVA [Concomitant]
     Active Substance: LEFLUNOMIDE
  3. ACTONEL [Concomitant]
     Active Substance: RISEDRONATE SODIUM
  4. LYRICA [Concomitant]
     Active Substance: PREGABALIN
  5. ACTEMRA [Suspect]
     Active Substance: TOCILIZUMAB
     Route: 042
     Dates: start: 20121113
  6. ACTEMRA [Suspect]
     Active Substance: TOCILIZUMAB
     Route: 042
     Dates: start: 20150120
  7. VOLTAREN [Concomitant]
     Active Substance: DICLOFENAC SODIUM
  8. TYLENOL [Concomitant]
     Active Substance: ACETAMINOPHEN
  9. FOLIC ACID. [Concomitant]
     Active Substance: FOLIC ACID
  10. ACTEMRA [Suspect]
     Active Substance: TOCILIZUMAB
     Indication: RHEUMATOID ARTHRITIS
     Route: 042
     Dates: start: 20111025, end: 20150120
  11. ACTEMRA [Suspect]
     Active Substance: TOCILIZUMAB
     Route: 042
     Dates: start: 20130801
  12. ACTEMRA [Suspect]
     Active Substance: TOCILIZUMAB
     Route: 042
     Dates: start: 20150605
  13. ACTEMRA [Suspect]
     Active Substance: TOCILIZUMAB
     Route: 042
     Dates: start: 20130607
  14. ACTEMRA [Suspect]
     Active Substance: TOCILIZUMAB
     Route: 042
     Dates: start: 20150911
  15. METHOTREXATE [Concomitant]
     Active Substance: METHOTREXATE
  16. ACTEMRA [Suspect]
     Active Substance: TOCILIZUMAB
     Route: 042
     Dates: start: 20141223

REACTIONS (9)
  - Impaired healing [Recovered/Resolved]
  - Influenza [Recovering/Resolving]
  - Wound infection [Recovered/Resolved]
  - Musculoskeletal stiffness [Unknown]
  - White blood cell count decreased [Not Recovered/Not Resolved]
  - Rheumatoid arthritis [Unknown]
  - Neutropenia [Recovered/Resolved]
  - Cellulitis [Not Recovered/Not Resolved]
  - Localised infection [Recovering/Resolving]

NARRATIVE: CASE EVENT DATE: 201403
